FAERS Safety Report 19195972 (Version 2)
Quarter: 2021Q2

REPORT INFORMATION
  Report Type: Report from Study
  Country: RU (occurrence: RU)
  Receive Date: 20210429
  Receipt Date: 20210615
  Transmission Date: 20210717
  Serious: Yes (Life-Threatening, Hospitalization)
  Sender: FDA-Public Use
  Company Number: RU-GLAXOSMITHKLINE-RU2021094095

PATIENT
  Age: 73 Year
  Sex: Male
  Weight: 77.5 kg

DRUGS (3)
  1. NIRAPARIB [Suspect]
     Active Substance: NIRAPARIB
     Indication: PROSTATE CANCER METASTATIC
     Dosage: MOST RECENT DOSE ADMINISTERED ON 15?APR?2021
     Route: 048
     Dates: start: 20190930, end: 20210415
  2. ABIRATERONE ACETATE. [Suspect]
     Active Substance: ABIRATERONE ACETATE
     Indication: PROSTATE CANCER METASTATIC
     Dosage: MOST RECENT DOSE WAS ADMINISTERED ON 13/APR/2021
     Route: 048
     Dates: start: 20190930, end: 20210413
  3. PREDNISONE. [Concomitant]
     Active Substance: PREDNISONE
     Indication: PROSTATE CANCER METASTATIC
     Dosage: 1 MOST RECENT DOSE ADMINISTERED ON 13/APR/2021
     Route: 048
     Dates: start: 20190930, end: 20210413

REACTIONS (1)
  - Chronic kidney disease [Not Recovered/Not Resolved]

NARRATIVE: CASE EVENT DATE: 20210413
